FAERS Safety Report 5357353-X (Version None)
Quarter: 2007Q2

REPORT INFORMATION
  Report Type: 
  Country: None (occurrence: None)
  Receive Date: 20070614
  Receipt Date: 20070612
  Transmission Date: 20071010
  Serious: Yes (Other)
  Sender: FDA-Public Use
  Company Number: A0655304A

PATIENT
  Age: 63 Year
  Sex: Male

DRUGS (2)
  1. ADVAIR DISKUS 100/50 [Suspect]
     Indication: DRUG USE FOR UNKNOWN INDICATION
     Route: 065
  2. COUMADIN [Concomitant]

REACTIONS (4)
  - BLINDNESS [None]
  - RETINAL DISORDER [None]
  - RETINAL TEAR [None]
  - VITREOUS FLOATERS [None]
